FAERS Safety Report 7440256-4 (Version None)
Quarter: 2011Q2

REPORT INFORMATION
  Report Type: 
  Country: None (occurrence: None)
  Receive Date: 20110427
  Receipt Date: 20100521
  Transmission Date: 20111010
  Serious: Yes (Other)
  Sender: FDA-Public Use
  Company Number: US-PFIZER INC-2010042547

PATIENT
  Sex: Female
  Weight: 8.571 kg

DRUGS (3)
  1. AZITHROMYCIN [Suspect]
     Indication: INFLUENZA
     Dosage: 100 MG, 1X/DAY
     Route: 048
     Dates: start: 20100317, end: 20100317
  2. PROVENTIL [Concomitant]
     Dosage: 2 ML, 3X/DAY
     Dates: start: 20100315
  3. AZITHROMYCIN [Suspect]
     Dosage: 50 MG, 1X/DAY
     Dates: start: 20100318, end: 20100321

REACTIONS (1)
  - URTICARIA [None]
